FAERS Safety Report 8808098 (Version 1)
Quarter: 2012Q4

REPORT INFORMATION
  Report Type: 
  Country: US (occurrence: US)
  Receive Date: 20120925
  Receipt Date: 20120925
  Transmission Date: 20130627
  Serious: No
  Sender: FDA-Public Use
  Company Number: US-COVIDIEN/TYCO HEALTHCARE/MALLINCKRODT-T201102721

PATIENT
  Age: 59 Year
  Sex: Female

DRUGS (2)
  1. KIT FOR THE PREPARATION OF TECHNETIUM(TC-99M)SESTAMBI [Suspect]
     Indication: CARDIAC IMAGING PROCEDURE
     Dosage: UNK
     Dates: start: 20111121, end: 20111121
  2. ULTRA-TECHNEKOW DTE GENERATOR [Concomitant]
     Indication: CARDIAC IMAGING PROCEDURE
     Dosage: 9.9 mCi, single
     Dates: start: 20111121, end: 20111121

REACTIONS (1)
  - Drug ineffective [Unknown]
